FAERS Safety Report 6078183-X (Version None)
Quarter: 2009Q1

REPORT INFORMATION
  Report Type: 
  Country: None (occurrence: None)
  Receive Date: 20090213
  Receipt Date: 20090208
  Transmission Date: 20090719
  Serious: Yes (Hospitalization, Other)
  Sender: FDA-Public Use
  Company Number: PHBS2009LU00753

PATIENT
  Age: 41 Year
  Sex: Female

DRUGS (8)
  1. CYCLOSPORINE [Suspect]
     Indication: RENAL TRANSPLANT
     Dosage: 225 MG/DAY
  2. TOPIRAMATE [Suspect]
     Indication: EPILEPSY
     Dosage: 150 MG/DAY
     Dates: end: 20071201
  3. VALPROATE SODIUM [Concomitant]
     Indication: CONVULSION
     Dosage: 1750 MG/DAY
  4. ATENOLOL [Concomitant]
  5. MYCOPHENOLATE MOFETIL [Concomitant]
     Dosage: 900 MG/DAY
  6. METHYLPREDNISOLONE 4MG TAB [Concomitant]
     Dosage: 4 MG/DAY
  7. FLUORESCEIN [Concomitant]
     Indication: ANGIOGRAM RETINA
  8. GANCICLOVIR [Concomitant]

REACTIONS (8)
  - ENCEPHALITIS CYTOMEGALOVIRUS [None]
  - MACULOPATHY [None]
  - PARTIAL SEIZURES WITH SECONDARY GENERALISATION [None]
  - RENAL IMPAIRMENT [None]
  - RETINAL PIGMENT EPITHELIOPATHY [None]
  - SCOTOMA [None]
  - VISION BLURRED [None]
  - VISUAL ACUITY REDUCED [None]
